FAERS Safety Report 8429641-1 (Version None)
Quarter: 2012Q2

REPORT INFORMATION
  Report Type: 
  Country: None (occurrence: None)
  Receive Date: 20120604
  Receipt Date: 20120522
  Transmission Date: 20120825
  Serious: Yes (Hospitalization)
  Sender: FDA-Public Use
  Company Number: 2012P1030449

PATIENT
  Age: 66 Year
  Sex: Male

DRUGS (4)
  1. ALBENDAZOLE (NO PREF. NAME) [Suspect]
     Indication: BRAIN NEOPLASM
     Dosage: 0.4 GM; TID; PO, 0.2 GM; TID; PO
     Route: 048
     Dates: start: 20120301, end: 20120301
  2. ALBENDAZOLE (NO PREF. NAME) [Suspect]
     Indication: INFECTION
     Dosage: 0.4 GM; TID; PO, 0.2 GM; TID; PO
     Route: 048
     Dates: start: 20120301, end: 20120301
  3. ALBENDAZOLE (NO PREF. NAME) [Suspect]
     Indication: BRAIN NEOPLASM
     Dosage: 0.4 GM; TID; PO, 0.2 GM; TID; PO
     Route: 048
     Dates: start: 20120513, end: 20120513
  4. ALBENDAZOLE (NO PREF. NAME) [Suspect]
     Indication: INFECTION
     Dosage: 0.4 GM; TID; PO, 0.2 GM; TID; PO
     Route: 048
     Dates: start: 20120513, end: 20120513

REACTIONS (4)
  - NAUSEA [None]
  - BODY TEMPERATURE INCREASED [None]
  - VOMITING [None]
  - ERYTHEMA [None]
